FAERS Safety Report 5502104-9 (Version None)
Quarter: 2007Q4

REPORT INFORMATION
  Report Type: 
  Country: None (occurrence: None)
  Receive Date: 20071030
  Receipt Date: 20071024
  Transmission Date: 20080405
  Serious: Yes (Congenital Anomaly)
  Sender: FDA-Public Use
  Company Number: FR-WYE-G00511607

PATIENT
  Sex: Male

DRUGS (3)
  1. RHINADVIL [Suspect]
     Dosage: 1 TO 2 TABLETS PER DAY
     Route: 064
     Dates: start: 20051020, end: 20051025
  2. DERINOX [Suspect]
     Dosage: 3 TO 4 NASAL SPRAYS PER DAY
     Route: 064
     Dates: start: 20051020, end: 20051025
  3. POLERY [Suspect]
     Dosage: 15 TO 30 ML PER DAY
     Route: 064
     Dates: start: 20051020, end: 20051025

REACTIONS (3)
  - CARDIAC ANEURYSM [None]
  - DRUG EXPOSURE DURING PREGNANCY [None]
  - VENTRICULAR SEPTAL DEFECT [None]
